FAERS Safety Report 9100125 (Version 3)
Quarter: 2013Q4

REPORT INFORMATION
  Report Type: Spontaneous
  Country: US (occurrence: US)
  Receive Date: 20130214
  Receipt Date: 20131126
  Transmission Date: 20140711
  Serious: Yes (Hospitalization, Other)
  Sender: FDA-Public Use
  Company Number: US-PFIZER INC-2013057730

PATIENT
  Age: 59 Year
  Sex: Male
  Weight: 68.48 kg

DRUGS (12)
  1. VIAGRA [Suspect]
     Indication: ERECTILE DYSFUNCTION
     Dosage: 100 MG, AS NEEDED
     Route: 048
  2. SPIRIVA [Concomitant]
     Dosage: UNK
  3. COMBIVENT [Concomitant]
     Dosage: UNK
  4. SYMBICORT [Concomitant]
     Dosage: UNK
  5. DURAGESIC [Concomitant]
     Dosage: UNK
     Route: 062
  6. UROXATRAL [Concomitant]
     Dosage: UNK
  7. RITALIN [Concomitant]
     Dosage: UNK
  8. LITHIUM [Concomitant]
     Dosage: UNK
  9. TEMAZEPAM [Concomitant]
     Dosage: UNK
  10. LIBRIUM [Concomitant]
     Dosage: UNK
  11. OLANZAPINE [Concomitant]
     Dosage: UNK
  12. FINASTERIDE [Concomitant]
     Dosage: UNK

REACTIONS (5)
  - Rib fracture [Recovered/Resolved]
  - Respiratory failure [Recovered/Resolved]
  - Fall [Recovered/Resolved]
  - Nerve compression [Unknown]
  - Traumatic lung injury [Unknown]
